FAERS Safety Report 5745266-0 (Version None)
Quarter: 2008Q2

REPORT INFORMATION
  Report Type: 
  Country: None (occurrence: None)
  Receive Date: 20080521
  Receipt Date: 20080516
  Transmission Date: 20081010
  Serious: Yes (Hospitalization)
  Sender: FDA-Public Use
  Company Number: JP-ASTRAZENECA-2008AP01717

PATIENT
  Age: 26773 Day
  Sex: Female
  Weight: 42.3 kg

DRUGS (16)
  1. IRESSA [Suspect]
     Indication: NON-SMALL CELL LUNG CANCER
     Route: 048
     Dates: start: 20060705
  2. RENIVACE [Concomitant]
     Indication: HYPERTENSION
     Dosage: DOSE UNKNOWN
     Route: 048
     Dates: start: 19930101
  3. ONEALFA [Concomitant]
     Indication: OSTEOPOROSIS
     Dosage: DOSE UNKNOWN
     Route: 048
     Dates: start: 19930101
  4. SIMVASTATIN [Concomitant]
     Indication: HYPERLIPIDAEMIA
     Dosage: DOSE UNKNOWN
     Route: 048
     Dates: start: 19930101
  5. SENNA EXTRACT [Concomitant]
     Indication: CONSTIPATION
     Dosage: DOSE UNKNOWN
     Route: 048
     Dates: start: 19930101
  6. MUCOSTA [Concomitant]
     Indication: GASTRITIS PROPHYLAXIS
     Dosage: DOSE UNKNOWN
     Route: 048
     Dates: start: 19930101
  7. DIDRONEL [Concomitant]
     Indication: OSTEOPOROSIS
     Dosage: DOSE UNKNOWN
     Route: 048
     Dates: start: 19930101
  8. WARFARIN SODIUM [Concomitant]
     Indication: MITRAL VALVE DISEASE MIXED
     Dosage: DOSE UNKNOWN
     Route: 048
     Dates: start: 20060525
  9. ASPIRIN [Concomitant]
     Indication: MITRAL VALVE DISEASE MIXED
     Dosage: DOSE UNKNOWN
     Route: 048
     Dates: start: 20060731
  10. INFLUENZA HA VACCINE [Concomitant]
     Indication: INFLUENZA IMMUNISATION
     Dosage: DOSE UNKNOWN
     Route: 058
     Dates: start: 20061023, end: 20061023
  11. XYLOCAINE [Concomitant]
     Indication: CARDIAC PACEMAKER REPLACEMENT
     Dosage: DOSE UNKNOWN
     Route: 058
     Dates: start: 20070328, end: 20070328
  12. SOLDEM 3A [Concomitant]
     Indication: CARDIAC PACEMAKER REPLACEMENT
     Dosage: DOSE UNKNOWN
     Route: 042
     Dates: start: 20070328, end: 20070328
  13. ATROPINE SULFATE [Concomitant]
     Indication: CARDIAC PACEMAKER REPLACEMENT
     Dosage: DOSE UNKNOWN
     Route: 042
     Dates: start: 20070328, end: 20070328
  14. PENTAGIN [Concomitant]
     Indication: CARDIAC PACEMAKER REPLACEMENT
     Dosage: DOSE UNKNOWN
     Route: 042
     Dates: start: 20070328, end: 20070328
  15. ATARAX [Concomitant]
     Indication: CARDIAC PACEMAKER REPLACEMENT
     Dosage: DOSE UNKNOWN
     Route: 042
     Dates: start: 20070328, end: 20070328
  16. PENTCILLIN [Concomitant]
     Indication: CARDIAC PACEMAKER REPLACEMENT
     Dosage: DOSE UNKNOWN
     Route: 042
     Dates: start: 20070328, end: 20070331

REACTIONS (1)
  - ANAEMIA [None]
